FAERS Safety Report 15121263 (Version 1)
Quarter: 2018Q3

REPORT INFORMATION
  Report Type: Spontaneous
  Country: US (occurrence: US)
  Receive Date: 20180709
  Receipt Date: 20180709
  Transmission Date: 20181010
  Serious: No
  Sender: FDA-Public Use
  Company Number: US-AKRON, INC.-2051569

PATIENT
  Age: 65 Year
  Sex: Female

DRUGS (1)
  1. CLOBETASOL PROPIONATE CREAM, USP [Suspect]
     Active Substance: CLOBETASOL PROPIONATE
     Route: 061

REACTIONS (3)
  - Skin burning sensation [Recovered/Resolved]
  - Rash macular [Recovered/Resolved]
  - Pruritus [Recovered/Resolved]
